FAERS Safety Report 8211623-6 (Version None)
Quarter: 2012Q1

REPORT INFORMATION
  Report Type: 
  Country: None (occurrence: None)
  Receive Date: 20120315
  Receipt Date: 20120307
  Transmission Date: 20120608
  Serious: Yes (Hospitalization)
  Sender: FDA-Public Use
  Company Number: US-JNJFOC-20110800511

PATIENT
  Sex: Male

DRUGS (12)
  1. LUPRON [Concomitant]
     Indication: CANCER HORMONAL THERAPY
     Route: 030
     Dates: start: 20090714
  2. ZOMETA [Concomitant]
     Indication: BONE DISORDER
     Dosage: 2-3 TIMES WEEKLY, PRN
     Route: 042
     Dates: start: 20090714
  3. CALCIUM CARBONATE [Concomitant]
     Indication: NUTRITIONAL SUPPORT
     Dosage: 2-3 TIMES WEEKLY, PRN
     Route: 048
     Dates: start: 20100224
  4. IBUPROFEN (ADVIL) [Concomitant]
     Indication: CANCER PAIN
     Dosage: 2-3 TIMES WEEKLY, PRN
     Route: 048
     Dates: start: 20110113
  5. ABIRATERONE ACETATE [Suspect]
     Indication: PROSTATE CANCER METASTATIC
     Route: 048
     Dates: start: 20100310
  6. ZOCOR [Concomitant]
     Indication: HYPERCHOLESTEROLAEMIA
     Dosage: 2-3 TIMES WEEKLY, PRN
     Route: 048
     Dates: start: 20090901
  7. PREDNISONE TAB [Suspect]
     Indication: PROSTATE CANCER METASTATIC
     Route: 048
     Dates: start: 20100310
  8. NAPROXEN (ALEVE) [Concomitant]
     Indication: MUSCULOSKELETAL PAIN
     Dosage: 2-3 TIMES WEEKLY, PRN
     Route: 048
     Dates: start: 20091225
  9. LUPRON [Concomitant]
     Route: 030
     Dates: start: 20100310
  10. LUPRON [Concomitant]
     Route: 030
     Dates: start: 20100310
  11. ABIRATERONE ACETATE [Suspect]
     Route: 048
  12. LUPRON [Concomitant]
     Indication: PROSTATE CANCER
     Route: 030
     Dates: start: 20090714

REACTIONS (3)
  - ELECTROCARDIOGRAM ST SEGMENT DEPRESSION [None]
  - ELECTROCARDIOGRAM QT PROLONGED [None]
  - SUPRAVENTRICULAR TACHYCARDIA [None]
